FAERS Safety Report 16335556 (Version 1)
Quarter: 2019Q2

REPORT INFORMATION
  Report Type: Other
  Country: DE (occurrence: DE)
  Receive Date: 20190521
  Receipt Date: 20190521
  Transmission Date: 20190711
  Serious: Yes (Other)
  Sender: FDA-Public Use
  Company Number: DE-ASTELLAS-2019US020847

PATIENT
  Age: 72 Year
  Sex: Female

DRUGS (10)
  1. ERLOTINIB [Suspect]
     Active Substance: ERLOTINIB
     Indication: CHORDOMA
     Dosage: UNK, UNKNOWN FREQ.
     Route: 065
  2. ERLOTINIB [Suspect]
     Active Substance: ERLOTINIB
     Indication: OFF LABEL USE
  3. BEVACIZUMAB. [Suspect]
     Active Substance: BEVACIZUMAB
     Indication: CHORDOMA
     Dosage: UNK, UNKNOWN FREQ.
     Route: 065
  4. EVEROLIMUS. [Suspect]
     Active Substance: EVEROLIMUS
     Indication: OFF LABEL USE
  5. SUNITINIB [Suspect]
     Active Substance: SUNITINIB
     Indication: OFF LABEL USE
  6. BEVACIZUMAB. [Suspect]
     Active Substance: BEVACIZUMAB
     Indication: OFF LABEL USE
  7. SUNITINIB [Suspect]
     Active Substance: SUNITINIB
     Indication: CHORDOMA
     Dosage: UNK, UNKNOWN FREQ.
     Route: 065
  8. IMATINIB. [Suspect]
     Active Substance: IMATINIB MESYLATE
     Indication: CHORDOMA
     Dosage: UNK UNK, UNKNOWN FREQ.
     Route: 065
  9. EVEROLIMUS. [Suspect]
     Active Substance: EVEROLIMUS
     Indication: CHORDOMA
     Dosage: UNK, UNKNOWN FREQ.
     Route: 065
  10. IMATINIB. [Suspect]
     Active Substance: IMATINIB MESYLATE
     Indication: OFF LABEL USE

REACTIONS (2)
  - Intentional product use issue [Unknown]
  - Off label use [Unknown]
